FAERS Safety Report 10971596 (Version 1)
Quarter: 2015Q1

REPORT INFORMATION
  Report Type: Spontaneous
  Country: US (occurrence: US)
  Receive Date: 20150331
  Receipt Date: 20150331
  Transmission Date: 20150721
  Serious: No
  Sender: FDA-Public Use
  Company Number: US-GLAXOSMITHKLINE-US2015GSK041923

PATIENT
  Age: 50 Year
  Sex: Male

DRUGS (1)
  1. HYCAMTIN [Suspect]
     Active Substance: TOPOTECAN HYDROCHLORIDE
     Indication: NEOPLASM MALIGNANT
     Dosage: 0.50 MG, QD, DAYS 1 TO 5 OF 21 DAY CYCLE
     Route: 048
     Dates: start: 20150220

REACTIONS (1)
  - Fatigue [Unknown]
